FAERS Safety Report 24247196 (Version 1)
Quarter: 2024Q3

REPORT INFORMATION
  Report Type: Spontaneous
  Country: US (occurrence: US)
  Receive Date: 20240826
  Receipt Date: 20240826
  Transmission Date: 20241017
  Serious: No
  Sender: ALCON
  Company Number: US-ALCON LABORATORIES-ALC2024US002990

PATIENT
  Age: 67 Year
  Sex: Female

DRUGS (1)
  1. ZADITOR [Suspect]
     Active Substance: KETOTIFEN FUMARATE
     Indication: Product used for unknown indication
     Dosage: UNKNOWN
     Route: 047

REACTIONS (9)
  - Hordeolum [Recovered/Resolved]
  - Drug ineffective [Unknown]
  - Dry skin [Recovering/Resolving]
  - Dark circles under eyes [Not Recovered/Not Resolved]
  - Skin wrinkling [Not Recovered/Not Resolved]
  - Memory impairment [Recovering/Resolving]
  - Dry eye [Recovering/Resolving]
  - Swelling of eyelid [Recovering/Resolving]
  - Hypersensitivity [Recovering/Resolving]
